FAERS Safety Report 20524084 (Version 2)
Quarter: 2022Q1

REPORT INFORMATION
  Report Type: Report from Study
  Country: CN (occurrence: CN)
  Receive Date: 20220228
  Receipt Date: 20220321
  Transmission Date: 20220424
  Serious: Yes (Other)
  Sender: FDA-Public Use
  Company Number: CN-NOVARTISPH-NVSC2021CN282106

PATIENT
  Age: 72 Year
  Sex: Male
  Weight: 66 kg

DRUGS (10)
  1. ENTRESTO [Suspect]
     Active Substance: SACUBITRIL\VALSARTAN
     Indication: Cardiac failure chronic
     Dosage: 50 MG
     Route: 048
     Dates: start: 20201221, end: 20211209
  2. ATORVASTATIN CALCIUM [Concomitant]
     Active Substance: ATORVASTATIN CALCIUM
     Indication: Pre-existing disease
     Dosage: 20 MG, UNKNOWN
     Route: 048
     Dates: start: 20201221
  3. FINASTERIDE [Concomitant]
     Active Substance: FINASTERIDE
     Indication: Prostatomegaly
     Dosage: 5 MG, UNKNOWN
     Route: 048
     Dates: start: 20201221
  4. FINASTERIDE [Concomitant]
     Active Substance: FINASTERIDE
     Indication: Pre-existing disease
  5. CLOPIDOGREL BISULFATE [Concomitant]
     Active Substance: CLOPIDOGREL BISULFATE
     Indication: Pre-existing disease
     Dosage: 75 MG, UNKNOWN
     Route: 048
     Dates: start: 20201221
  6. TORSEMIDE [Concomitant]
     Active Substance: TORSEMIDE
     Indication: Cardiac failure
     Dosage: 5 MG, UNKNOWN
     Route: 048
     Dates: start: 20201221
  7. BISOPROLOL FUMARATE [Concomitant]
     Active Substance: BISOPROLOL FUMARATE
     Indication: Cardiac failure
     Dosage: 5 MG, UNKNOWN
     Route: 048
     Dates: start: 20201229
  8. SPIRONOLACTONE [Concomitant]
     Active Substance: SPIRONOLACTONE
     Indication: Cardiac failure
     Dosage: 20 MG, UNKNOWN
     Route: 048
     Dates: start: 20201229
  9. RIVAROXABAN [Concomitant]
     Active Substance: RIVAROXABAN
     Indication: Anticoagulant therapy
     Dosage: 15 MG, UNKNOWN
     Route: 048
     Dates: start: 20201229
  10. RABEPRAZOLE SODIUM [Concomitant]
     Active Substance: RABEPRAZOLE SODIUM
     Indication: Gastrointestinal disorder
     Dosage: 20 MG, UNKNOWN
     Route: 048
     Dates: start: 20201229

REACTIONS (2)
  - Hypokalaemia [Recovered/Resolved]
  - Wrong technique in product usage process [Unknown]

NARRATIVE: CASE EVENT DATE: 20201221
